FAERS Safety Report 24582456 (Version 2)
Quarter: 2024Q4

REPORT INFORMATION
  Report Type: Spontaneous
  Country: JP (occurrence: JP)
  Receive Date: 20241106
  Receipt Date: 20241201
  Transmission Date: 20250114
  Serious: Yes (Other)
  Sender: NOVO NORDISK
  Company Number: JP-NOVOPROD-1310805

PATIENT
  Age: 4 Decade
  Sex: Male
  Weight: 76 kg

DRUGS (1)
  1. COAGULATION FACTOR IX (RECOMBINANT), GLYCOPEGYLATED [Suspect]
     Active Substance: COAGULATION FACTOR IX (RECOMBINANT), GLYCOPEGYLATED
     Indication: Factor IX deficiency
     Dosage: 3000.00 UT
     Route: 042
     Dates: start: 20200604

REACTIONS (1)
  - Appendix cancer [Recovering/Resolving]

NARRATIVE: CASE EVENT DATE: 20231201
